FAERS Safety Report 19775410 (Version 1)
Quarter: 2021Q3

REPORT INFORMATION
  Report Type: Spontaneous
  Country: CA (occurrence: CA)
  Receive Date: 20210901
  Receipt Date: 20210901
  Transmission Date: 20211014
  Serious: Yes (Life-Threatening, Other)
  Sender: FDA-Public Use
  Company Number: CA-TEVA-2021-CA-1946802

PATIENT
  Age: 7 Month
  Sex: Male
  Weight: 8 kg

DRUGS (17)
  1. DESONIDE. [Concomitant]
     Active Substance: DESONIDE
  2. DIPROSONE [Concomitant]
     Active Substance: BETAMETHASONE DIPROPIONATE
  3. CISPLATIN INJECTION [Suspect]
     Active Substance: CISPLATIN
     Indication: RHABDOID TUMOUR
     Route: 042
  4. CYCLOPHOSPHAMIDE. [Suspect]
     Active Substance: CYCLOPHOSPHAMIDE
     Route: 042
  5. AMLODIPINE [Concomitant]
     Active Substance: AMLODIPINE BESYLATE
  6. BASE DERMATOLOGIQUE [Concomitant]
  7. HYDROCORTISONE. [Concomitant]
     Active Substance: HYDROCORTISONE
  8. MAGNESIUM [Concomitant]
     Active Substance: MAGNESIUM
  9. PENTAMIDINE ISETHIONATE INJ 300MG/VITAL BP [Concomitant]
  10. ZINC. [Concomitant]
     Active Substance: ZINC
  11. ETOPOSIDE. [Suspect]
     Active Substance: ETOPOSIDE
     Indication: RHABDOID TUMOUR
     Route: 042
  12. VINCRISTINE SULFATE. [Suspect]
     Active Substance: VINCRISTINE SULFATE
     Indication: RHABDOID TUMOUR
     Route: 042
  13. CLOTRIMAZOLE. [Concomitant]
     Active Substance: CLOTRIMAZOLE
  14. CYTARABINE INJECTION [Concomitant]
     Active Substance: CYTARABINE
  15. MEROPENEM. [Concomitant]
     Active Substance: MEROPENEM
  16. FILGRASTIM [Concomitant]
     Active Substance: FILGRASTIM
  17. ONDANSETRON [Concomitant]
     Active Substance: ONDANSETRON

REACTIONS (3)
  - Neutropenia [Recovered/Resolved]
  - Aplastic anaemia [Recovered/Resolved]
  - Pyrexia [Recovered/Resolved]
